FAERS Safety Report 13583775 (Version 1)
Quarter: 2017Q2

REPORT INFORMATION
  Report Type: Spontaneous
  Country: US (occurrence: US)
  Receive Date: 20170526
  Receipt Date: 20170526
  Transmission Date: 20170830
  Serious: No
  Sender: FDA-Public Use
  Company Number: US-009507513-1705USA006219

PATIENT
  Age: 38 Year
  Sex: Male

DRUGS (6)
  1. KEPPRA [Concomitant]
     Active Substance: LEVETIRACETAM
  2. TEMPRA [Concomitant]
     Active Substance: ACETAMINOPHEN
  3. DEXILANT [Concomitant]
     Active Substance: DEXLANSOPRAZOLE
  4. MEVACOR [Concomitant]
     Active Substance: LOVASTATIN
     Route: 048
  5. LAMICTAL [Concomitant]
     Active Substance: LAMOTRIGINE
  6. BELSOMRA [Suspect]
     Active Substance: SUVOREXANT
     Indication: INSOMNIA
     Dosage: 10 MG, ONCE NIGHTLY, 30MINS BEFORE BED
     Route: 048
     Dates: start: 20170510

REACTIONS (1)
  - Sleep disorder [Unknown]

NARRATIVE: CASE EVENT DATE: 20170510
